FAERS Safety Report 9719647 (Version 1)
Quarter: 2013Q4

REPORT INFORMATION
  Report Type: Spontaneous
  Country: US (occurrence: US)
  Receive Date: 20131128
  Receipt Date: 20131128
  Transmission Date: 20140711
  Serious: Yes (Other)
  Sender: FDA-Public Use
  Company Number: US-JNJFOC-20131111804

PATIENT
  Sex: Female

DRUGS (1)
  1. LISTERINE TOTAL CARE ZERO [Suspect]
     Indication: DENTAL DISORDER PROPHYLAXIS
     Route: 049

REACTIONS (3)
  - Aphthous stomatitis [Not Recovered/Not Resolved]
  - Eating disorder symptom [Not Recovered/Not Resolved]
  - Burning sensation [Not Recovered/Not Resolved]
